FAERS Safety Report 10399510 (Version 1)
Quarter: 2014Q3

REPORT INFORMATION
  Report Type: Spontaneous
  Country: IT (occurrence: None)
  Receive Date: 20140819
  Receipt Date: 20140819
  Transmission Date: 20150326
  Serious: Yes (Hospitalization)
  Sender: FDA-Public Use
  Company Number: AUR-APL-2014-08762

PATIENT
  Age: 55 Year
  Sex: Male

DRUGS (1)
  1. LEVOFLOXACIN 500MG (LEVOFLOXACIN) UNKNOWN, 500MG [Suspect]
     Active Substance: LEVOFLOXACIN
     Indication: CYSTITIS
     Dosage: TOTAL
     Route: 048
     Dates: start: 20140806, end: 20140806

REACTIONS (3)
  - Rash erythematous [None]
  - Skin reaction [None]
  - Mechanical urticaria [None]

NARRATIVE: CASE EVENT DATE: 20140806
